FAERS Safety Report 11528656 (Version 1)
Quarter: 2015Q3

REPORT INFORMATION
  Report Type: Spontaneous
  Country: IT (occurrence: IT)
  Receive Date: 20150921
  Receipt Date: 20150921
  Transmission Date: 20151125
  Serious: Yes (Other)
  Sender: FDA-Public Use
  Company Number: PHHY2015IT111651

PATIENT
  Age: 11 Year
  Sex: Female

DRUGS (2)
  1. OCTREOTIDE. [Suspect]
     Active Substance: OCTREOTIDE
     Indication: HYPERINSULINISM
     Route: 065
  2. DIAZOXIDE [Suspect]
     Active Substance: DIAZOXIDE
     Indication: HYPERINSULINISM
     Route: 065

REACTIONS (4)
  - Nervous system disorder [Recovered/Resolved]
  - Hypoglycaemia [Not Recovered/Not Resolved]
  - Epilepsy [Recovered/Resolved]
  - Product use issue [Unknown]
